FAERS Safety Report 18176139 (Version 1)
Quarter: 2020Q3

REPORT INFORMATION
  Report Type: Report from Study
  Country: None (occurrence: CA)
  Receive Date: 20200820
  Receipt Date: 20200820
  Transmission Date: 20201103
  Serious: Yes (Hospitalization, Disabling, Other)
  Sender: FDA-Public Use
  Company Number: CA-HLS-202001067

PATIENT
  Age: 57 Year
  Sex: Male

DRUGS (4)
  1. OXCARBAZEPINE. [Concomitant]
     Active Substance: OXCARBAZEPINE
     Route: 065
  2. EPIVAL [Concomitant]
     Active Substance: DIVALPROEX SODIUM
     Route: 065
  3. CLOZARIL [Suspect]
     Active Substance: CLOZAPINE
     Indication: PRODUCT USED FOR UNKNOWN INDICATION
     Route: 048
  4. INVEGA SUSTENNA [Concomitant]
     Active Substance: PALIPERIDONE PALMITATE
     Dosage: SUSPENSION (EXTENDED?RELEASE)
     Route: 065

REACTIONS (6)
  - Somnolence [Unknown]
  - Weight decreased [Unknown]
  - Confusional state [Unknown]
  - Decreased appetite [Unknown]
  - Pallor [Unknown]
  - Drug intolerance [Unknown]
